FAERS Safety Report 5228304-3 (Version None)
Quarter: 2007Q1

REPORT INFORMATION
  Report Type: 
  Country: None (occurrence: None)
  Receive Date: 20070131
  Receipt Date: 20070115
  Transmission Date: 20070707
  Serious: Yes (Death, Other)
  Sender: FDA-Public Use
  Company Number: 2006JP005507

PATIENT
  Age: 56 Year
  Sex: Male

DRUGS (9)
  1. FUNGUARD(MICAFUNGIN) INJECTION [Suspect]
     Dosage: 100 MG, IV DRIP
     Route: 041
     Dates: start: 20061216, end: 20061220
  2. FUNGUARD(MICAFUNGIN) INJECTION [Suspect]
     Dosage: 100 MG, IV DRIP
     Route: 041
     Dates: start: 20061222
  3. VANCOMYCIN [Suspect]
     Dosage: SEE IMAGE
     Route: 041
     Dates: start: 20061216, end: 20061221
  4. VANCOMYCIN [Suspect]
     Dosage: SEE IMAGE
     Route: 041
     Dates: start: 20061215
  5. CEFTAZIDIME [Suspect]
     Dosage: 4 G, IV DRIP
     Route: 041
     Dates: start: 20061215, end: 20061220
  6. TOBRAMYCIN SULFATE [Suspect]
     Dosage: 120 MG, IV DRIP
     Route: 041
     Dates: start: 20061211, end: 20061214
  7. PIPERACILLIN [Suspect]
     Dosage: 4 G, IV DRIP
     Route: 041
     Dates: start: 20061211, end: 20061215
  8. LEUCOVORIN (CALCIUM FOLINATE) INJECTION [Concomitant]
  9. BENAMBAX (PENTAMIDINE) INHALATION [Concomitant]

REACTIONS (3)
  - ADVERSE EVENT [None]
  - BLOOD CREATININE INCREASED [None]
  - HAEMODIALYSIS [None]
